FAERS Safety Report 18080494 (Version 2)
Quarter: 2020Q3

REPORT INFORMATION
  Report Type: Spontaneous
  Country: FR (occurrence: FR)
  Receive Date: 20200728
  Receipt Date: 20200924
  Transmission Date: 20201103
  Serious: Yes (Death)
  Sender: FDA-Public Use
  Company Number: FR-IGSA-BIG0010808

PATIENT
  Age: 50 Year
  Sex: Male
  Weight: 73 kg

DRUGS (23)
  1. DEFITELIO [Concomitant]
     Active Substance: DEFIBROTIDE SODIUM
     Indication: PROPHYLAXIS
     Dosage: UNK
     Dates: start: 20200117
  2. HIZENTRA [Concomitant]
     Active Substance: HUMAN IMMUNOGLOBULIN G
     Indication: IMMUNODEFICIENCY
     Dosage: UNK UNK, Q.WK.
     Dates: end: 20200113
  3. NIVESTIM [Concomitant]
     Active Substance: FILGRASTIM
  4. TAZOCILLINE [Suspect]
     Active Substance: PIPERACILLIN SODIUM\TAZOBACTAM SODIUM
     Indication: INFECTION
     Dosage: 762.5 MILLIGRAM, QD
     Route: 042
     Dates: start: 20200109, end: 20200113
  5. BACTRIM [Concomitant]
     Active Substance: SULFAMETHOXAZOLE\TRIMETHOPRIM
  6. ZITHROMAX [Concomitant]
     Active Substance: AZITHROMYCIN DIHYDRATE
  7. PRIMPERAN [Concomitant]
     Active Substance: METOCLOPRAMIDE HYDROCHLORIDE
  8. ETOPOSIDE. [Suspect]
     Active Substance: ETOPOSIDE
     Indication: HODGKIN^S DISEASE
     Dosage: 192 MILLIGRAM, QD
     Route: 042
     Dates: start: 20200108, end: 20200111
  9. CYCLOPHOSPHAMIDE. [Suspect]
     Active Substance: CYCLOPHOSPHAMIDE
     Indication: HODGKIN^S DISEASE
     Dosage: 762.5 MILLIGRAM, QD
     Route: 042
     Dates: start: 20200108, end: 20200111
  10. ULTIBRO BREEZHALER [Concomitant]
     Active Substance: GLYCOPYRRONIUM\INDACATEROL
  11. URSOLVAN [Concomitant]
     Active Substance: URSODIOL
     Indication: PROPHYLAXIS
  12. IMIPENEM [Concomitant]
     Active Substance: IMIPENEM
     Indication: INFECTION
     Dosage: UNK
     Route: 042
     Dates: start: 20200114
  13. TEICOPLANINE [Concomitant]
     Active Substance: TEICOPLANIN
     Indication: INFECTION
     Dosage: UNK
     Dates: start: 20200113
  14. CASPOFUNGINE [Concomitant]
     Active Substance: CASPOFUNGIN
     Indication: INFECTION
     Dosage: UNK
     Route: 042
     Dates: start: 20200113
  15. VALACICLOVIR [Concomitant]
     Active Substance: VALACYCLOVIR HYDROCHLORIDE
  16. FOLINORAL [Concomitant]
     Active Substance: LEUCOVORIN CALCIUM
  17. URSOLVAN [Concomitant]
     Active Substance: URSODIOL
     Indication: VENOOCCLUSIVE DISEASE
  18. FLEBOGAMMA [Suspect]
     Active Substance: HUMAN IMMUNOGLOBULIN G
     Indication: IMMUNODEFICIENCY
     Dosage: UNK
     Dates: start: 20200113, end: 20200113
  19. FLUDARABINE [Suspect]
     Active Substance: FLUDARABINE PHOSPHATE
     Indication: HODGKIN^S DISEASE
     Dosage: 57.5 MILLIGRAM, QD
     Route: 042
     Dates: start: 20200115, end: 20200119
  20. BUSULFAN. [Suspect]
     Active Substance: BUSULFAN
     Indication: HODGKIN^S DISEASE
     Dosage: 234 MILLIGRAM, QD
     Route: 042
     Dates: start: 20200116, end: 20200117
  21. MESNA. [Concomitant]
     Active Substance: MESNA
     Indication: PROPHYLAXIS
     Dosage: 870 MILLIGRAM, QD
     Dates: start: 20200108, end: 20200111
  22. THYMOGLOBULINE [Concomitant]
     Active Substance: LAPINE T-LYMPHOCYTE IMMUNE GLOBULIN
     Indication: HODGKIN^S DISEASE
     Dosage: 182.5 MILLIGRAM, QD
     Route: 042
     Dates: start: 20200118, end: 20200119
  23. THIOTEPA. [Concomitant]
     Active Substance: THIOTEPA
     Dosage: 365 MILLIGRAM, QD
     Dates: start: 20200107

REACTIONS (6)
  - Venoocclusive disease [Fatal]
  - Ascites [Fatal]
  - Intra-abdominal fluid collection [Fatal]
  - Renal failure [Fatal]
  - Hepatocellular injury [Fatal]
  - Gallbladder enlargement [Fatal]

NARRATIVE: CASE EVENT DATE: 20200120
